FAERS Safety Report 24587587 (Version 2)
Quarter: 2024Q4

REPORT INFORMATION
  Report Type: Other
  Country: US (occurrence: US)
  Receive Date: 20241107
  Receipt Date: 20241121
  Transmission Date: 20250115
  Serious: Yes (Life-Threatening, Hospitalization)
  Sender: ALVOGEN
  Company Number: US-ALVOGEN-2024095782

PATIENT
  Age: 78 Year
  Sex: Female

DRUGS (11)
  1. FLECAINIDE [Suspect]
     Active Substance: FLECAINIDE
     Indication: Atrial fibrillation
     Dosage: UNDERWENT SUCCESSFUL CARDIOVERSION WITH 300 MG FLECAINIDE ORALLY UNDER TELEMETRIC MONITORING
     Route: 048
     Dates: start: 20221025
  2. FLECAINIDE [Suspect]
     Active Substance: FLECAINIDE
     Indication: Atrial fibrillation
     Dosage: THE PATIENT WAS DISCHARGE ON VERAPAMIL 120 MG B.I.D. AND FLECAINIDE 150 MG B.I.D.
     Dates: start: 2022
  3. FLECAINIDE [Suspect]
     Active Substance: FLECAINIDE
     Indication: Atrial fibrillation
     Dosage: PIP APPROACH WITH FLECAINIDE 300 MG AS NEEDED WITH DAILY VERAPAMIL 120 MG TWICE DAILY
  4. FLECAINIDE [Suspect]
     Active Substance: FLECAINIDE
     Indication: Atrial fibrillation
     Dosage: ENDED UP TAKING FLECAINIDE 900MG DAILY FOR 7 DAYS.
  5. VERAPAMIL [Concomitant]
     Active Substance: VERAPAMIL HYDROCHLORIDE
     Indication: Atrial fibrillation
     Dosage: THE PATIENT WAS MAINTAINED ON VERAPAMIL 240 MG TWICE DAILY.
  6. VERAPAMIL [Concomitant]
     Active Substance: VERAPAMIL HYDROCHLORIDE
     Indication: Atrial fibrillation
     Dosage: THE PATIENT WAS DISCHARGED ON VERAPAMIL 120 MG B.I.D. AND FLECAINIDE 150 MG B.I.D.
     Dates: start: 2022
  7. VERAPAMIL [Concomitant]
     Active Substance: VERAPAMIL HYDROCHLORIDE
     Indication: Atrial fibrillation
     Dosage: PIP APPROACH WITH FLECAINIDE ?300 MG AS NEEDED WITH DAILY VERAPAMIL 120 MG TWICE DAILY
     Dates: start: 20221111
  8. ALBUTEROL [Concomitant]
     Active Substance: ALBUTEROL
     Indication: Product used for unknown indication
     Dosage: FREQUENT USE
  9. LOSARTAN [Concomitant]
     Active Substance: LOSARTAN
     Indication: Product used for unknown indication
  10. EMPAGLIFLOZIN [Concomitant]
     Active Substance: EMPAGLIFLOZIN
     Indication: Product used for unknown indication
  11. SPIRONOLACTONE [Concomitant]
     Active Substance: SPIRONOLACTONE
     Indication: Product used for unknown indication

REACTIONS (3)
  - Toxicity to various agents [Unknown]
  - Accidental overdose [Unknown]
  - Self-medication [Unknown]
